FAERS Safety Report 7035207-0 (Version None)
Quarter: 2010Q4

REPORT INFORMATION
  Report Type: 
  Country: None (occurrence: None)
  Receive Date: 20101007
  Receipt Date: 20101007
  Transmission Date: 20110411
  Serious: No
  Sender: FDA-Public Use
  Company Number: None

PATIENT
  Age: 39 Year
  Sex: Female
  Weight: 70.3075 kg

DRUGS (2)
  1. ORTHO EVRA [Suspect]
     Indication: CONTRACEPTION
     Dosage: 1 PATCH WEEKLY OTHER
     Route: 050
     Dates: start: 20081101, end: 20100401
  2. ORTHO EVRA [Suspect]
     Indication: MIGRAINE
     Dosage: 1 PATCH WEEKLY OTHER
     Route: 050
     Dates: start: 20081101, end: 20100401

REACTIONS (2)
  - DEAFNESS TRANSITORY [None]
  - TINNITUS [None]
